FAERS Safety Report 8396775 (Version 6)
Quarter: 2014Q1

REPORT INFORMATION
  Report Type: Spontaneous
  Country: US (occurrence: US)
  Receive Date: 20120208
  Receipt Date: 20140110
  Transmission Date: 20141002
  Serious: Yes (Life-Threatening, Hospitalization, Other)
  Sender: FDA-Public Use
  Company Number: US-ASTRAZENECA-2012SE06881

PATIENT
  Age: 74 Year
  Sex: Female
  Weight: 70.8 kg

DRUGS (15)
  1. NEXIUM [Suspect]
     Indication: GASTROOESOPHAGEAL REFLUX DISEASE
     Route: 048
  2. NEXIUM [Suspect]
     Indication: GASTROOESOPHAGEAL REFLUX DISEASE
     Route: 048
  3. PRILOSEC OTC [Suspect]
     Indication: GASTROOESOPHAGEAL REFLUX DISEASE
     Route: 048
  4. PRILOSEC [Suspect]
     Route: 048
  5. PRILOSEC [Suspect]
     Dosage: OMEPRAZOLE GENERIC
     Route: 048
  6. MORPHINE [Suspect]
     Route: 065
  7. UNSPECIFIED CHEMOTHERAPY DRUGS [Suspect]
     Route: 065
  8. MICARDIS [Concomitant]
     Indication: BLOOD PRESSURE ABNORMAL
  9. METOPROLOL [Concomitant]
     Indication: BLOOD PRESSURE ABNORMAL
  10. BACTRIM [Concomitant]
     Indication: BLADDER DISORDER
     Dosage: 800/160 HS
  11. CELEXA [Concomitant]
     Indication: BLADDER DISORDER
  12. EMBALEX [Concomitant]
     Indication: MICTURITION URGENCY
  13. GABAPENTIN [Concomitant]
     Indication: NERVE INJURY
     Dosage: BID
  14. GABAPENTIN [Concomitant]
     Indication: NERVE INJURY
  15. LIBRAX [Concomitant]
     Indication: COLON INJURY
     Dosage: 5/2.5MG TID

REACTIONS (16)
  - Multi-organ failure [Unknown]
  - Colon neoplasm [Unknown]
  - Neoplasm [Unknown]
  - Leiomyosarcoma [Unknown]
  - Coma [Recovered/Resolved]
  - Gastrooesophageal reflux disease [Unknown]
  - Dysphonia [Unknown]
  - Cough [Unknown]
  - Stress urinary incontinence [Unknown]
  - General symptom [Unknown]
  - Drug hypersensitivity [Unknown]
  - Drug intolerance [Unknown]
  - Off label use [Unknown]
  - Drug dose omission [Unknown]
  - Drug ineffective [Unknown]
  - Intentional drug misuse [Unknown]
